FAERS Safety Report 16263276 (Version 1)
Quarter: 2019Q2

REPORT INFORMATION
  Report Type: Report from Study
  Country: US (occurrence: US)
  Receive Date: 20190502
  Receipt Date: 20190502
  Transmission Date: 20190711
  Serious: Yes (Other)
  Sender: FDA-Public Use
  Company Number: US-SA-2019SA116207

PATIENT
  Age: 39 Year
  Sex: Male

DRUGS (1)
  1. INSULIN GLARGINE [Suspect]
     Active Substance: INSULIN GLARGINE
     Indication: DIABETES MELLITUS
     Dosage: 25 UNITS IN THE MORNING AND 20 UNITS AT NIGHT, BID
     Route: 058

REACTIONS (4)
  - Dialysis [Unknown]
  - Diabetes mellitus inadequate control [Unknown]
  - Product dose omission [Unknown]
  - Inappropriate schedule of product administration [Unknown]
